FAERS Safety Report 14191456 (Version 5)
Quarter: 2018Q1

REPORT INFORMATION
  Report Type: Spontaneous
  Country: US (occurrence: US)
  Receive Date: 20171115
  Receipt Date: 20180216
  Transmission Date: 20180508
  Serious: Yes (Hospitalization, Other)
  Sender: FDA-Public Use
  Company Number: US-SA-2017SA223710

PATIENT
  Age: 76 Year
  Sex: Female

DRUGS (2)
  1. PRALUENT [Suspect]
     Active Substance: ALIROCUMAB
     Indication: PRODUCT USED FOR UNKNOWN INDICATION
     Route: 058
     Dates: start: 201602
  2. ALIROCUMAB PREFILLED PEN [Suspect]
     Active Substance: ALIROCUMAB
     Indication: PRODUCT USED FOR UNKNOWN INDICATION
     Dates: start: 201602

REACTIONS (5)
  - Head injury [Unknown]
  - Peripheral swelling [Unknown]
  - Fall [Unknown]
  - Cardiac infection [Unknown]
  - Amnesia [Unknown]

NARRATIVE: CASE EVENT DATE: 2017
